FAERS Safety Report 5785187-0 (Version None)
Quarter: 2008Q2

REPORT INFORMATION
  Report Type: 
  Country: None (occurrence: None)
  Receive Date: 20080605
  Receipt Date: 20080423
  Transmission Date: 20081010
  Serious: No
  Sender: FDA-Public Use
  Company Number: A0724245A

PATIENT
  Age: 32 Year
  Sex: Female
  Weight: 62 kg

DRUGS (2)
  1. ALLI [Suspect]
  2. THYROID REPLACEMENT [Concomitant]

REACTIONS (4)
  - ANOREXIA [None]
  - ASTHENIA [None]
  - GASTROINTESTINAL SOUNDS ABNORMAL [None]
  - STOMACH DISCOMFORT [None]
